FAERS Safety Report 9254040 (Version 1)
Quarter: 2013Q2

REPORT INFORMATION
  Report Type: Spontaneous
  Country: IT (occurrence: None)
  Receive Date: 20130418
  Receipt Date: 20130418
  Transmission Date: 20140414
  Serious: Yes (Hospitalization)
  Sender: FDA-Public Use
  Company Number: AUR-APL-2013-03072

PATIENT
  Age: 66 Year
  Sex: Male

DRUGS (5)
  1. GABAPENTIN (GABAPENTIN) [Suspect]
     Indication: DIABETIC NEUROPATHY
     Route: 048
     Dates: start: 20130328, end: 20130330
  2. CARDICOR (BISOPROLOL FUMARATE) [Concomitant]
  3. TRENTAL (PENTOXIFYLLINE) [Concomitant]
  4. AMLODIPINE (AMLODIPINE) [Concomitant]
  5. FUROSEMIDE (FUROSEMIDE) [Concomitant]

REACTIONS (3)
  - Rhabdomyolysis [None]
  - Hypotension [None]
  - Somatoform disorder cardiovascular [None]
